FAERS Safety Report 4796686-2 (Version None)
Quarter: 2005Q4

REPORT INFORMATION
  Report Type: 
  Country: None (occurrence: None)
  Receive Date: 20051003
  Receipt Date: 20040922
  Transmission Date: 20060501
  Serious: Yes (Other)
  Sender: FDA-Public Use
  Company Number: PHBS2004US12593

PATIENT
  Age: 63 Year
  Sex: Female

DRUGS (2)
  1. ESTALIS COMBIPATCH(ESTRADIOL, NORETHISTERONE ACETATE) UNKNOWN [Suspect]
     Indication: HORMONE REPLACEMENT THERAPY
     Dates: start: 19990101, end: 19990212
  2. PREMPRO [Suspect]
     Indication: HORMONE REPLACEMENT THERAPY
     Dates: start: 19970301, end: 20021201

REACTIONS (1)
  - BREAST CANCER [None]
